FAERS Safety Report 8080947-8 (Version None)
Quarter: 2012Q1

REPORT INFORMATION
  Report Type: 
  Country: None (occurrence: None)
  Receive Date: 20120130
  Receipt Date: 20120120
  Transmission Date: 20120608
  Serious: Yes (Hospitalization)
  Sender: FDA-Public Use
  Company Number: US-BAYER-201035606NA

PATIENT
  Age: 24 Year
  Sex: Female
  Weight: 129.25 kg

DRUGS (5)
  1. YAZ [Suspect]
     Indication: ACNE
  2. ACETAMINOPHEN W/ CODEINE [Concomitant]
     Dosage: UNK
     Dates: start: 20050507
  3. YASMIN [Suspect]
     Indication: ACNE
     Dosage: UNK
     Dates: start: 20050801
  4. YASMIN [Suspect]
     Indication: MENSTRUATION IRREGULAR
  5. DROSPIRENONE AND ETHINYL ESTRADIOL [Suspect]
     Indication: ACNE

REACTIONS (2)
  - PULMONARY EMBOLISM [None]
  - PAIN [None]
